FAERS Safety Report 13114015 (Version 1)
Quarter: 2017Q1

REPORT INFORMATION
  Report Type: Spontaneous
  Country: IN (occurrence: IN)
  Receive Date: 20170113
  Receipt Date: 20170113
  Transmission Date: 20170428
  Serious: Yes (Death)
  Sender: FDA-Public Use
  Company Number: IN-JNJFOC-20170110571

PATIENT
  Age: 25 Year
  Sex: Male

DRUGS (1)
  1. GOLIMUMAB [Suspect]
     Active Substance: GOLIMUMAB
     Indication: SARCOIDOSIS
     Route: 058

REACTIONS (3)
  - Off label use [Unknown]
  - Cerebral toxoplasmosis [Fatal]
  - Product use issue [Unknown]
